FAERS Safety Report 14377330 (Version 1)
Quarter: 2018Q1

REPORT INFORMATION
  Report Type: Spontaneous
  Country: US (occurrence: US)
  Receive Date: 20180111
  Receipt Date: 20180111
  Transmission Date: 20180509
  Serious: No
  Sender: FDA-Public Use
  Company Number: US-DRREDDYS-USA/USA/17/0091962

PATIENT
  Sex: Male

DRUGS (1)
  1. NICOTINE. [Suspect]
     Active Substance: NICOTINE
     Indication: SMOKING CESSATION THERAPY
     Route: 062
     Dates: start: 20170626

REACTIONS (7)
  - Hypersensitivity [Unknown]
  - Application site discolouration [Unknown]
  - Wrong technique in product usage process [Unknown]
  - Application site erythema [Unknown]
  - Application site eczema [Unknown]
  - Application site rash [Recovering/Resolving]
  - Incorrect dose administered [Unknown]
